FAERS Safety Report 5445851-X (Version None)
Quarter: 2007Q3

REPORT INFORMATION
  Report Type: 
  Country: None (occurrence: None)
  Receive Date: 20070904
  Receipt Date: 20070817
  Transmission Date: 20080115
  Serious: Yes (Death)
  Sender: FDA-Public Use
  Company Number: 2007EU001879

PATIENT

DRUGS (1)
  1. TACROLIMUS [Suspect]
     Indication: TRANSPLANT REJECTION

REACTIONS (1)
  - ENCEPHALITIS HERPES [None]
